FAERS Safety Report 19010715 (Version 1)
Quarter: 2021Q1

REPORT INFORMATION
  Report Type: Spontaneous
  Country: BR (occurrence: BR)
  Receive Date: 20210315
  Receipt Date: 20210315
  Transmission Date: 20210420
  Serious: Yes (Other)
  Sender: FDA-Public Use
  Company Number: BR-BAXTER-2021BAX001047

PATIENT
  Age: 56 Year
  Sex: Male

DRUGS (1)
  1. TISSEEL LYO [Suspect]
     Active Substance: FIBRINOGEN HUMAN\THROMBIN HUMAN
     Indication: TISSUE SEALING
     Dosage: EYE DROPS, 1 DROP
     Route: 047
     Dates: start: 202012

REACTIONS (1)
  - Conjunctival granuloma [Not Recovered/Not Resolved]
